FAERS Safety Report 9530773 (Version 1)
Quarter: 2013Q3

REPORT INFORMATION
  Report Type: Spontaneous
  Country: US (occurrence: None)
  Receive Date: 20130916
  Receipt Date: 20130916
  Transmission Date: 20140515
  Serious: Yes (Hospitalization)
  Sender: FDA-Public Use
  Company Number: None

PATIENT
  Age: 60 Year
  Sex: Female
  Weight: 55.79 kg

DRUGS (9)
  1. ZYVOX [Suspect]
     Indication: ENDOCARDITIS
     Route: 042
     Dates: start: 20130822, end: 20130906
  2. SERTRALINE [Suspect]
     Indication: DEPRESSION
     Route: 048
     Dates: start: 20130824, end: 20130907
  3. COLCHICINE [Concomitant]
  4. HYDROCODONE AND APAP [Concomitant]
  5. METROPROLOL [Concomitant]
  6. NICOTINE [Concomitant]
  7. ONDANSETRON [Concomitant]
  8. OXYBUTYNIN [Concomitant]
  9. PANTOPRAZOLE [Concomitant]

REACTIONS (4)
  - Confusional state [None]
  - Lethargy [None]
  - Abasia [None]
  - Serotonin syndrome [None]
